FAERS Safety Report 5955453-4 (Version None)
Quarter: 2008Q4

REPORT INFORMATION
  Report Type: 
  Country: None (occurrence: None)
  Receive Date: 20081113
  Receipt Date: 20081113
  Transmission Date: 20090506
  Serious: Yes (Hospitalization)
  Sender: FDA-Public Use
  Company Number: None

PATIENT
  Age: 56 Year
  Sex: Male
  Weight: 113.7 kg

DRUGS (2)
  1. LISINOPRIL [Suspect]
     Indication: INFECTION
     Dosage: 40 MG EVERY DAY PO
     Route: 048
     Dates: start: 20080910, end: 20080915
  2. CIPROFLOXACIN [Suspect]
     Dosage: 400 MG EVERY DAY IV
     Route: 042
     Dates: start: 20080913, end: 20080918

REACTIONS (10)
  - BACTERIAL INFECTION [None]
  - DIALYSIS [None]
  - ENDOCARDITIS [None]
  - ENTEROCOCCAL INFECTION [None]
  - FLUID OVERLOAD [None]
  - PERICARDIAL EFFUSION [None]
  - RENAL FAILURE ACUTE [None]
  - RENAL TUBULAR NECROSIS [None]
  - STAPHYLOCOCCAL INFECTION [None]
  - URINARY TRACT INFECTION [None]
